FAERS Safety Report 7568614-8 (Version None)
Quarter: 2011Q2

REPORT INFORMATION
  Report Type: 
  Country: None (occurrence: None)
  Receive Date: 20110623
  Receipt Date: 20110616
  Transmission Date: 20111010
  Serious: Yes (Hospitalization, Other)
  Sender: FDA-Public Use
  Company Number: FR-TEVA-242855ISR

PATIENT
  Sex: Male

DRUGS (7)
  1. MESNA [Suspect]
  2. ONDANSETRON HYDROCHLORIDE [Concomitant]
     Dates: start: 20080804, end: 20081115
  3. IFOSFAMIDE [Suspect]
     Indication: BONE SARCOMA
     Dates: start: 20080805, end: 20081115
  4. CISPLATIN [Suspect]
     Indication: BONE SARCOMA
     Dates: start: 20080804, end: 20081113
  5. MESNA [Suspect]
     Indication: BONE SARCOMA
     Dates: start: 20080805, end: 20081115
  6. DOXORUBICIN HCL [Suspect]
     Indication: BONE SARCOMA
     Dates: start: 20080804, end: 20081113
  7. METHYLPREDNISOLONE [Concomitant]
     Dates: start: 20080804, end: 20081115

REACTIONS (25)
  - RENAL FAILURE ACUTE [None]
  - NAUSEA [None]
  - PARESIS [None]
  - HALLUCINATION [None]
  - ALTERED STATE OF CONSCIOUSNESS [None]
  - VOMITING [None]
  - CARDIOMYOPATHY [None]
  - HYPOVOLAEMIC SHOCK [None]
  - DYSPNOEA [None]
  - APHASIA [None]
  - GASTRITIS [None]
  - NEUROPATHY PERIPHERAL [None]
  - CACHEXIA [None]
  - ORAL FUNGAL INFECTION [None]
  - ATRIAL FIBRILLATION [None]
  - PANCYTOPENIA [None]
  - FEBRILE NEUTROPENIA [None]
  - SEPSIS [None]
  - MUCOSAL INFLAMMATION [None]
  - VENOUS STENOSIS [None]
  - SENSITISATION [None]
  - THROMBOCYTOPENIA [None]
  - DISORIENTATION [None]
  - SOMNOLENCE [None]
  - ASTHENIA [None]
